FAERS Safety Report 12273069 (Version 2)
Quarter: 2016Q2

REPORT INFORMATION
  Report Type: Spontaneous
  Country: US (occurrence: US)
  Receive Date: 20160415
  Receipt Date: 20160415
  Transmission Date: 20160815
  Serious: No
  Sender: FDA-Public Use
  Company Number: US-ROCHE-1072117

PATIENT
  Sex: Male

DRUGS (3)
  1. PEGASYS [Suspect]
     Active Substance: PEGINTERFERON ALFA-2A
     Indication: HEPATITIS C
     Route: 065
     Dates: start: 20120522
  2. RIBAVIRIN. [Suspect]
     Active Substance: RIBAVIRIN
     Indication: HEPATITIS C
     Route: 065
     Dates: start: 20120522
  3. RIBAVIRIN. [Suspect]
     Active Substance: RIBAVIRIN
     Route: 065
     Dates: start: 20120913

REACTIONS (8)
  - Musculoskeletal discomfort [Unknown]
  - Dizziness [Unknown]
  - Anaemia [Unknown]
  - Asthenia [Recovering/Resolving]
  - Nausea [Unknown]
  - Weight decreased [Unknown]
  - White blood cell count decreased [Unknown]
  - Decreased appetite [Recovering/Resolving]
